FAERS Safety Report 13665136 (Version 1)
Quarter: 2017Q2

REPORT INFORMATION
  Report Type: Spontaneous
  Country: US (occurrence: US)
  Receive Date: 20170619
  Receipt Date: 20170619
  Transmission Date: 20170830
  Serious: Yes (Disabling)
  Sender: FDA-Public Use
  Company Number: None

PATIENT
  Sex: Female
  Weight: 54 kg

DRUGS (4)
  1. FISH OIL [Concomitant]
     Active Substance: FISH OIL
  2. SINEMET [Concomitant]
     Active Substance: CARBIDOPA\LEVODOPA
  3. REQUIP [Concomitant]
     Active Substance: ROPINIROLE HYDROCHLORIDE
  4. XANAX [Suspect]
     Active Substance: ALPRAZOLAM
     Indication: RESTLESS LEGS SYNDROME
     Route: 048

REACTIONS (4)
  - Drug use disorder [None]
  - Panic reaction [None]
  - Withdrawal syndrome [None]
  - Fatigue [None]
